FAERS Safety Report 25871468 (Version 1)
Quarter: 2025Q4

REPORT INFORMATION
  Report Type: Spontaneous
  Country: US (occurrence: US)
  Receive Date: 20251001
  Receipt Date: 20251001
  Transmission Date: 20260118
  Serious: No
  Sender: RECKITT BENCKISER
  Company Number: US-INDIVIOR US-INDV-161345-2025

PATIENT
  Age: 17 Year
  Sex: Male

DRUGS (4)
  1. BUPRENORPHINE [Suspect]
     Active Substance: BUPRENORPHINE
     Indication: Drug use disorder
     Dosage: 300 MILLIGRAM, QMO
     Route: 065
  2. BUPRENORPHINE [Suspect]
     Active Substance: BUPRENORPHINE
  3. FENTANYL [Suspect]
     Active Substance: FENTANYL
     Indication: Product used for unknown indication
     Dosage: UNK
  4. FENTANYL [Suspect]
     Active Substance: FENTANYL
     Dosage: UNK
     Route: 055

REACTIONS (4)
  - Off label use [Recovered/Resolved]
  - Drug withdrawal syndrome [Unknown]
  - Vomiting [Unknown]
  - Drug abuse [Not Recovered/Not Resolved]
